FAERS Safety Report 11634523 (Version 2)
Quarter: 2016Q2

REPORT INFORMATION
  Report Type: Other
  Country: IT (occurrence: IT)
  Receive Date: 20151015
  Receipt Date: 20160422
  Transmission Date: 20160815
  Serious: Yes (Disabling)
  Sender: FDA-Public Use
  Company Number: IT-MYLANLABS-2015M1034020

PATIENT

DRUGS (2)
  1. RISEDRONATO RANBAXY [Suspect]
     Active Substance: RISEDRONATE SODIUM
     Indication: OSTEOPOROSIS
     Dosage: 35 MG, QW
     Route: 048
     Dates: start: 20111101, end: 20120501
  2. IBANDRONATE [Suspect]
     Active Substance: IBANDRONATE SODIUM
     Indication: OSTEOPOROSIS
     Dosage: 150 MG, MONTHLY
     Route: 048
     Dates: start: 20131201, end: 20150301

REACTIONS (2)
  - Purulent discharge [Recovering/Resolving]
  - Dental fistula [Recovering/Resolving]

NARRATIVE: CASE EVENT DATE: 20150624
